FAERS Safety Report 6647866-2 (Version None)
Quarter: 2010Q1

REPORT INFORMATION
  Report Type: 
  Country: None (occurrence: None)
  Receive Date: 20100318
  Receipt Date: 20100308
  Transmission Date: 20100710
  Serious: Yes (Other)
  Sender: FDA-Public Use
  Company Number: AU-1181094

PATIENT

DRUGS (3)
  1. TRAVATAN Z [Suspect]
     Dosage: OPHTHALMIC
     Route: 047
  2. ALPHAGAN P (BRIMONIDINE TARTRATE) OPHTHALMIC [Concomitant]
  3. TIMOPTOL XE (TIMOLOL MALEATE) OPHTHALMIC [Concomitant]

REACTIONS (1)
  - CHORIORETINAL ATROPHY [None]
